FAERS Safety Report 7658350-1 (Version None)
Quarter: 2011Q3

REPORT INFORMATION
  Report Type: 
  Country: None (occurrence: None)
  Receive Date: 20110802
  Receipt Date: 20110718
  Transmission Date: 20111222
  Serious: Yes (Other)
  Sender: FDA-Public Use
  Company Number: US-005345

PATIENT
  Sex: Male
  Weight: 104.3273 kg

DRUGS (6)
  1. DEGARELIX (240 MG, 80 MG) [Suspect]
     Indication: PROSTATE CANCER
     Dosage: (240 MG 1X SUBCUTANEOUS), (80 MG 1X/28 DAYS SUBCUTANEOUS)
     Route: 058
     Dates: start: 20101101, end: 20101101
  2. DEGARELIX (240 MG, 80 MG) [Suspect]
     Indication: PROSTATE CANCER
     Dosage: (240 MG 1X SUBCUTANEOUS), (80 MG 1X/28 DAYS SUBCUTANEOUS)
     Route: 058
     Dates: start: 20101201
  3. VITAMINS NOS [Concomitant]
  4. XANAX [Concomitant]
  5. LANTUS [Concomitant]
  6. VITAMIN D [Concomitant]

REACTIONS (7)
  - INJECTION SITE WARMTH [None]
  - INJECTION SITE ERYTHEMA [None]
  - INFLAMMATION [None]
  - CEREBROVASCULAR ACCIDENT [None]
  - HYPOAESTHESIA [None]
  - INJECTION SITE DISCOLOURATION [None]
  - PAIN IN EXTREMITY [None]
